FAERS Safety Report 12497200 (Version 2)
Quarter: 2016Q3

REPORT INFORMATION
  Report Type: Report from Study
  Country: US (occurrence: US)
  Receive Date: 20160624
  Receipt Date: 20160706
  Transmission Date: 20161109
  Serious: Yes (Hospitalization, Other)
  Sender: FDA-Public Use
  Company Number: US-ABBVIE-16K-163-1654672-00

PATIENT
  Age: 34 Year
  Sex: Female
  Weight: 61.29 kg

DRUGS (2)
  1. HUMIRA [Suspect]
     Active Substance: ADALIMUMAB
     Indication: ANAL FISTULA
     Route: 058
     Dates: start: 2014, end: 201508
  2. HUMIRA [Suspect]
     Active Substance: ADALIMUMAB
     Route: 058
     Dates: start: 201606

REACTIONS (11)
  - Eye swelling [Recovered/Resolved]
  - Acne [Recovered/Resolved]
  - Pyoderma gangrenosum [Recovered/Resolved]
  - Productive cough [Not Recovered/Not Resolved]
  - Asthenia [Recovered/Resolved]
  - Drug specific antibody present [Unknown]
  - Drug ineffective [Recovered/Resolved]
  - Colonic fistula [Recovered/Resolved]
  - Colitis ulcerative [Recovered/Resolved]
  - Subcutaneous abscess [Recovered/Resolved]
  - Weight decreased [Recovered/Resolved]

NARRATIVE: CASE EVENT DATE: 2014
